FAERS Safety Report 4358468-5 (Version None)
Quarter: 2004Q2

REPORT INFORMATION
  Report Type: 
  Country: None (occurrence: None)
  Receive Date: 20040514
  Receipt Date: 20030130
  Transmission Date: 20050107
  Serious: Yes (Other)
  Sender: FDA-Public Use
  Company Number: PHEH2003US01142

PATIENT
  Age: 71 Year
  Sex: Female

DRUGS (2)
  1. AREDIA [Suspect]
     Indication: MULTIPLE MYELOMA
  2. CHEMOTHERAPEUTICS,OTHER [Concomitant]

REACTIONS (7)
  - CHRONIC SINUSITIS [None]
  - FISTULA [None]
  - IMPAIRED HEALING [None]
  - OSTEOLYSIS [None]
  - OSTEONECROSIS [None]
  - SEQUESTRECTOMY [None]
  - TOOTH EXTRACTION [None]
